FAERS Safety Report 16017699 (Version 1)
Quarter: 2019Q1

REPORT INFORMATION
  Report Type: Spontaneous
  Country: US (occurrence: US)
  Receive Date: 20190228
  Receipt Date: 20190228
  Transmission Date: 20190418
  Serious: No
  Sender: FDA-Public Use
  Company Number: None

PATIENT
  Age: 59 Year
  Sex: Female
  Weight: 76.5 kg

DRUGS (3)
  1. WOMENS MULTIVITAMIN [Concomitant]
  2. ZOLPIDEM [Concomitant]
     Active Substance: ZOLPIDEM\ZOLPIDEM TARTRATE
  3. ZOLPIDEM TARTRATE. [Suspect]
     Active Substance: ZOLPIDEM TARTRATE
     Indication: INSOMNIA
     Route: 048
     Dates: start: 20190102, end: 20190226

REACTIONS (4)
  - Insomnia [None]
  - Balance disorder [None]
  - Hallucination [None]
  - Anxiety [None]

NARRATIVE: CASE EVENT DATE: 20190129
